FAERS Safety Report 10269636 (Version 5)
Quarter: 2024Q3

REPORT INFORMATION
  Report Type: Report from Study
  Country: JP (occurrence: JP)
  Receive Date: 20140701
  Receipt Date: 20240920
  Transmission Date: 20241017
  Serious: Yes (Other)
  Sender: AMGEN
  Company Number: JP-DSJP-DSJ-2014-112552

PATIENT
  Sex: Female
  Weight: 55 kg

DRUGS (17)
  1. DENOSUMAB [Suspect]
     Active Substance: DENOSUMAB
     Indication: Metastases to bone
     Dosage: 120 MG, 2013/3/6, 4/3, 5/1, 6/5, 7/12, 8/9, 9/6, 10/4, 11/6, 12/4, 2014/1/8
     Route: 058
     Dates: start: 20130306, end: 20140108
  2. ZOMETA [Suspect]
     Active Substance: ZOLEDRONIC ACID
     Indication: Product used for unknown indication
     Dosage: 4 MG, UNK
     Route: 042
     Dates: start: 20120627, end: 20130206
  3. CALCIUM CARBONATE\CHOLECALCIFEROL\MAGNESIUM CARBONATE [Concomitant]
     Active Substance: CALCIUM CARBONATE\CHOLECALCIFEROL\MAGNESIUM CARBONATE
     Dosage: 2 DF, QD
     Route: 048
     Dates: start: 20130809, end: 20140121
  4. FASLODEX                           /01285001/ [Concomitant]
     Dosage: UNK
     Route: 065
     Dates: start: 20130614, end: 20131004
  5. ENDOXAN                            /00021101/ [Concomitant]
     Dosage: 500 MG, UNK
     Route: 042
     Dates: start: 20131016, end: 20140226
  6. EPIRUBICIN HYDROCHLORIDE [Concomitant]
     Active Substance: EPIRUBICIN HYDROCHLORIDE
     Dosage: 50 MG, UNK
     Route: 042
     Dates: start: 20131016, end: 20140226
  7. LANSOPRAZOLE [Concomitant]
     Active Substance: LANSOPRAZOLE
     Dosage: 30 MG, QD
     Route: 048
     Dates: start: 20120616
  8. LOXONIN-60 [Concomitant]
     Dosage: 180 MG, QD
     Route: 048
     Dates: start: 20130709
  9. ZOLPIDEM TARTRATE [Concomitant]
     Active Substance: ZOLPIDEM TARTRATE
     Dosage: 5 MG, QD
     Route: 048
     Dates: start: 20130712
  10. LORAZEPAM [Concomitant]
     Active Substance: LORAZEPAM
     Dosage: 0.5 MG, QD
     Route: 048
     Dates: start: 20130712, end: 20130906
  11. OXYCODONE HYDROCHLORIDE [Concomitant]
     Active Substance: OXYCODONE HYDROCHLORIDE
     Dosage: 2.5 MG, QD
     Route: 048
     Dates: start: 20130906
  12. OXYCONTIN [Concomitant]
     Active Substance: OXYCODONE HYDROCHLORIDE
     Dosage: 10MG/DAY
     Route: 048
     Dates: start: 20140108
  13. PRIMPERAN [Concomitant]
     Active Substance: METOCLOPRAMIDE HYDROCHLORIDE
     Dosage: 15MG/DAY
     Route: 048
     Dates: start: 20131030, end: 20140211
  14. DECADRON [Concomitant]
     Active Substance: DEXAMETHASONE
     Dosage: 0.5 MG, UNK
     Route: 048
     Dates: start: 20131030, end: 20140227
  15. AROMASIN [Concomitant]
     Active Substance: EXEMESTANE
     Dosage: 25 MG, UNK
     Route: 048
     Dates: start: 20140414, end: 20140904
  16. AFINITOR [Concomitant]
     Active Substance: EVEROLIMUS
     Dosage: 10 MG, UNK
     Route: 048
     Dates: start: 20140611, end: 20140904
  17. LYRICA [Concomitant]
     Active Substance: PREGABALIN
     Dosage: 2DF/DAY
     Route: 048
     Dates: start: 20130809, end: 20130905

REACTIONS (1)
  - Osteonecrosis of jaw [Not Recovered/Not Resolved]

NARRATIVE: CASE EVENT DATE: 20140130
